FAERS Safety Report 6988245-8 (Version None)
Quarter: 2010Q3

REPORT INFORMATION
  Report Type: 
  Country: None (occurrence: None)
  Receive Date: 20100914
  Receipt Date: 20100906
  Transmission Date: 20110219
  Serious: Yes (Other)
  Sender: FDA-Public Use
  Company Number: 2010SP047819

PATIENT
  Age: 10 Year
  Sex: Male
  Weight: 52 kg

DRUGS (3)
  1. CLARITYNE CORT (LORATADINE/BETAMETHASONE) (LORATADINE/BETAMETHASONE /0 [Suspect]
     Indication: EAR INFECTION
     Dosage: BID;
  2. CLARITYNE CORT (LORATADINE/BETAMETHASONE) (LORATADINE/BETAMETHASONE /0 [Suspect]
     Indication: SINUSITIS
     Dosage: BID;
  3. MENADERM OTOLOGICO [Concomitant]

REACTIONS (1)
  - HYPERSENSITIVITY [None]
